FAERS Safety Report 15862703 (Version 10)
Quarter: 2020Q4

REPORT INFORMATION
  Report Type: Report from Study
  Country: CH (occurrence: CH)
  Receive Date: 20190124
  Receipt Date: 20201223
  Transmission Date: 20210113
  Serious: Yes (Hospitalization, Other)
  Sender: FDA-Public Use
  Company Number: CH-INCYTE CORPORATION-2019IN000397

PATIENT

DRUGS (37)
  1. JAKAVI [Suspect]
     Active Substance: RUXOLITINIB
     Indication: POLYCYTHAEMIA VERA
     Dosage: UNK UKN, UNK (DOSE: 20)
     Route: 048
     Dates: start: 20180816, end: 20180911
  2. ELIQUIS [Concomitant]
     Active Substance: APIXABAN
     Indication: THROMBOSIS PROPHYLAXIS
     Dosage: UNK UKN, UNK (DOSE: 5)
     Route: 065
     Dates: start: 20181227
  3. CLEXANE [Concomitant]
     Active Substance: ENOXAPARIN SODIUM
     Indication: THROMBOSIS PROPHYLAXIS
     Dosage: UNK UKN, UNK (DOSE: 40)
     Route: 065
     Dates: start: 20181216, end: 20181220
  4. FLUOCINOLONE ACETONIDE. [Concomitant]
     Active Substance: FLUOCINOLONE ACETONIDE
     Indication: PROCTALGIA
     Dosage: UNK UKN
     Route: 065
     Dates: start: 20170410
  5. JAKAVI [Suspect]
     Active Substance: RUXOLITINIB
     Dosage: UNK UKN, UNK (DOSE: 10)
     Route: 048
     Dates: start: 20181228, end: 20190121
  6. JAKAVI [Suspect]
     Active Substance: RUXOLITINIB
     Dosage: UNK UKN, UNK (DOSE: 20)
     Route: 048
     Dates: start: 20190122, end: 20190217
  7. JAKAVI [Suspect]
     Active Substance: RUXOLITINIB
     Dosage: UNK (DOSE: 20)
     Route: 065
     Dates: start: 20190917, end: 20191027
  8. SERTRALIN [SERTRALINE] [Concomitant]
     Active Substance: SERTRALINE HYDROCHLORIDE
     Indication: DEPRESSION
     Dosage: 50 MG, QD
     Route: 065
     Dates: end: 20200402
  9. EXCIPIAL [UREA] [Concomitant]
     Indication: PRURITUS
     Dosage: UNK UKN, UNK
     Route: 065
     Dates: start: 20181215, end: 20181217
  10. SURMONTIL [Concomitant]
     Active Substance: TRIMIPRAMINE MALEATE
     Dosage: UNK UKN (4 PERCENT, 8, UNITS: UNSPECIFIED)
     Route: 065
     Dates: start: 20191028
  11. XAZAL [Concomitant]
     Active Substance: LEVOCETIRIZINE HYDROCHLORIDE
     Indication: PRURITUS
     Dosage: UNK UKN (DOSE: 5)
     Route: 065
     Dates: start: 20190828
  12. JAKAVI [Suspect]
     Active Substance: RUXOLITINIB
     Dosage: UNK UKN, UNK (DOSE: 30)
     Route: 048
     Dates: start: 20190218, end: 20190428
  13. JAKAVI [Suspect]
     Active Substance: RUXOLITINIB
     Dosage: UNK (DOSE: 10)
     Route: 065
     Dates: start: 20191028, end: 20200820
  14. VIT D [Concomitant]
     Active Substance: VITAMIN D NOS
     Indication: OSTEOPOROSIS
  15. TRITTICO [Concomitant]
     Active Substance: TRAZODONE HYDROCHLORIDE
     Indication: DEMENTIA
     Dosage: UNK UKN, UNK (DOSE: 100)
     Route: 065
  16. BEPANTHEN [BENZALKONIUM CHLORIDE;DEXPANTHENOL;PRUNUS DULCIS OIL] [Concomitant]
     Indication: NASAL DRYNESS
     Dosage: UNK UKN (DOSE: 5)
     Route: 065
     Dates: start: 20190828
  17. SOLCOSERYL DENTAL [Concomitant]
     Indication: ORAL PAIN
     Dosage: UNK UKN
     Route: 065
     Dates: start: 20191009
  18. JAKAVI [Suspect]
     Active Substance: RUXOLITINIB
     Dosage: UNK (DOSE: 20)
     Route: 048
     Dates: start: 20190429, end: 20190623
  19. JAKAVI [Suspect]
     Active Substance: RUXOLITINIB
     Dosage: UNK UKN (DOSE: 10)
     Route: 048
     Dates: start: 20190828, end: 20190916
  20. CALCIMAGON [CALCIUM CARBONATE] [Concomitant]
     Indication: OSTEOPOROSIS
     Dosage: UNK (DOSE: 500)
     Route: 065
  21. VITARUBIN [HYDROXOCOBALAMIN ACETATE] [Concomitant]
     Indication: VITAMIN B12 DEFICIENCY
     Dosage: UNK UKN, 1000
     Route: 065
     Dates: start: 20190624, end: 20190624
  22. LITALIR [Concomitant]
     Active Substance: HYDROXYUREA
     Indication: PRODUCT USED FOR UNKNOWN INDICATION
     Dosage: UNK UKN, 500
     Route: 065
     Dates: start: 20170723, end: 20180814
  23. JAKAVI [Suspect]
     Active Substance: RUXOLITINIB
     Dosage: UNK (DOSE: 20)
     Route: 048
     Dates: start: 20190624, end: 20190827
  24. LISINOPRIL MEPHA [Concomitant]
     Active Substance: LISINOPRIL
     Dosage: UNK UKN (2.5)
     Route: 065
     Dates: start: 20190917, end: 20200217
  25. EXCIPIAL [UREA] [Concomitant]
     Indication: DRY SKIN
     Dosage: UNK
     Route: 065
     Dates: start: 20191003
  26. VIT D [Concomitant]
     Active Substance: VITAMIN D NOS
     Indication: PROPHYLAXIS
     Dosage: UNK UKN, UNK
     Route: 065
  27. LISINOPRIL MEPHA [Concomitant]
     Active Substance: LISINOPRIL
     Indication: HYPERTENSIVE CARDIOMYOPATHY
     Dosage: 5 MG, QD
     Route: 065
     Dates: start: 20190916, end: 20190916
  28. SERTRALIN [SERTRALINE] [Concomitant]
     Active Substance: SERTRALINE HYDROCHLORIDE
     Indication: DEMENTIA
  29. PLAK OUT [Concomitant]
     Indication: PROPHYLAXIS
     Dosage: UNK UKN, UNK
     Route: 065
     Dates: start: 20181215, end: 20181220
  30. LAXOBERON [Concomitant]
     Active Substance: SODIUM PICOSULFATE
     Indication: CONSTIPATION
     Dosage: UNK UKN (DOSE: 30)
     Route: 065
     Dates: start: 20190828
  31. VISINE [TETRYZOLINE HYDROCHLORIDE] [Concomitant]
     Indication: DRY EYE
     Dosage: UNK UKN (DOSE: 0.5)
     Route: 065
     Dates: start: 20190828
  32. FERINJECT [Concomitant]
     Active Substance: FERRIC CARBOXYMALTOSE
     Indication: IRON DEFICIENCY
     Dosage: UNK UKN, 100
     Route: 065
     Dates: start: 20180912
  33. JAKAVI [Suspect]
     Active Substance: RUXOLITINIB
     Dosage: UNK UKN, UNK (DOSE: 10)
     Route: 048
     Dates: start: 20180912, end: 20181217
  34. LACRYCON [GLYCEROL;HYALURONATE SODIUM;POLYACRYLATE SODIUM] [Concomitant]
     Indication: DRY EYE
     Dosage: UNK UKN, UNK
     Route: 065
  35. DEXPANTHENOL;HYDROCORTISONE ACETATE [Concomitant]
     Indication: DRY SKIN
     Dosage: UNK UKN, UNK
     Route: 065
  36. SURMONTIL [Concomitant]
     Active Substance: TRIMIPRAMINE MALEATE
     Indication: DEPRESSION
     Dosage: UNK UKN, UNK
     Route: 065
     Dates: end: 20191028
  37. NITRODERM [Concomitant]
     Active Substance: NITROGLYCERIN
     Indication: CARDIOMYOPATHY
     Dosage: UNK UKN (DOSE: 5)
     Route: 065
     Dates: start: 20190828

REACTIONS (21)
  - Aphthous ulcer [Recovered/Resolved]
  - Diarrhoea [Recovered/Resolved]
  - Pain [Recovered/Resolved]
  - Nausea [Recovered/Resolved]
  - Lymphopenia [Unknown]
  - Sinusitis [Recovered/Resolved]
  - Anaemia [Not Recovered/Not Resolved]
  - Dizziness [Recovered/Resolved]
  - Dizziness [Recovered/Resolved]
  - Fall [Recovered/Resolved]
  - Hypercholesterolaemia [Not Recovered/Not Resolved]
  - Thrombocytosis [Unknown]
  - Dehydration [Unknown]
  - Urosepsis [Recovered/Resolved]
  - Skin infection [Recovered/Resolved]
  - Syncope [Recovered/Resolved]
  - Diarrhoea [Recovered/Resolved]
  - Fatigue [Unknown]
  - Pruritus [Recovering/Resolving]
  - Rash [Recovered/Resolved]
  - Thrombocytopenia [Recovered/Resolved]

NARRATIVE: CASE EVENT DATE: 20180912
